FAERS Safety Report 20574105 (Version 1)
Quarter: 2022Q1

REPORT INFORMATION
  Report Type: Spontaneous
  Country: US (occurrence: US)
  Receive Date: 20220309
  Receipt Date: 20220309
  Transmission Date: 20220423
  Serious: No
  Sender: FDA-Public Use
  Company Number: US-PFIZER INC-2021641488

PATIENT
  Age: 53 Year
  Sex: Female

DRUGS (1)
  1. EUCRISA [Suspect]
     Active Substance: CRISABOROLE
     Indication: Inflammation
     Dosage: APPLY TWICE DAILY TO AREAS OF INFLAMMATION (LEGS)

REACTIONS (2)
  - Rash [Unknown]
  - Off label use [Unknown]
